FAERS Safety Report 19168010 (Version 1)
Quarter: 2021Q2

REPORT INFORMATION
  Report Type: Spontaneous
  Country: JP (occurrence: JP)
  Receive Date: 20210422
  Receipt Date: 20210422
  Transmission Date: 20210717
  Serious: Yes (Hospitalization, Other)
  Sender: FDA-Public Use
  Company Number: JP-AMGEN-JPNSP2019085760

PATIENT
  Age: 74 Year
  Sex: Male
  Weight: 48.7 kg

DRUGS (25)
  1. PHOSBLOCK [Concomitant]
     Active Substance: FERRIC HYDROXIDE
     Dosage: 2750 MG, EVERYDAY
     Route: 065
  2. PARSABIV [Suspect]
     Active Substance: ETELCALCETIDE HYDROCHLORIDE
     Indication: HYPERPARATHYROIDISM SECONDARY
     Dosage: 5.0 MG
     Route: 010
     Dates: end: 20181017
  3. NESP [Concomitant]
     Active Substance: DARBEPOETIN ALFA
     Dosage: 20 UG, QW
     Route: 065
     Dates: start: 20190128, end: 20190617
  4. NESP [Concomitant]
     Active Substance: DARBEPOETIN ALFA
     Dosage: 5 MICROGRAM, QWK
     Route: 042
     Dates: start: 20201214, end: 20210301
  5. FESIN [SACCHARATED IRON OXIDE] [Concomitant]
     Active Substance: IRON SUCROSE
     Dosage: 80 MILLIGRAM, QWK
     Route: 065
     Dates: start: 20181228, end: 20190118
  6. FESIN [SACCHARATED IRON OXIDE] [Concomitant]
     Active Substance: IRON SUCROSE
     Dosage: 80 MILLIGRAM, QWK
     Route: 065
     Dates: start: 20190419, end: 20190517
  7. MAXACALCITOL [Suspect]
     Active Substance: MAXACALCITOL
     Dosage: 2.5 UG, Q56H
     Route: 010
     Dates: start: 20200629
  8. NESP [Concomitant]
     Active Substance: DARBEPOETIN ALFA
     Dosage: 30 MICROGRAM, QWK
     Route: 042
     Dates: start: 20200203, end: 20200608
  9. NESP [Concomitant]
     Active Substance: DARBEPOETIN ALFA
     Dosage: 10 MICROGRAM, QWK
     Route: 042
     Dates: start: 20201102, end: 20201207
  10. FESIN [SACCHARATED IRON OXIDE] [Concomitant]
     Active Substance: IRON SUCROSE
     Dosage: 80 MILLIGRAM, QWK
     Route: 065
     Dates: start: 20191220, end: 20200117
  11. FESIN [SACCHARATED IRON OXIDE] [Concomitant]
     Active Substance: IRON SUCROSE
     Dosage: 80 MILLIGRAM, QWK
     Route: 065
     Dates: start: 20200221, end: 20200320
  12. MAXACALCITOL [Suspect]
     Active Substance: MAXACALCITOL
     Indication: PRODUCT USED FOR UNKNOWN INDICATION
     Dosage: 2.5 UG, Q56H
     Route: 010
     Dates: end: 20190308
  13. NESP [Concomitant]
     Active Substance: DARBEPOETIN ALFA
     Dosage: 20 MICROGRAM, QWK
     Route: 042
     Dates: start: 20200615, end: 20201026
  14. FESIN [SACCHARATED IRON OXIDE] [Concomitant]
     Active Substance: IRON SUCROSE
     Dosage: 80 MILLIGRAM, QWK
     Route: 065
     Dates: start: 20200424, end: 20200522
  15. FESIN [SACCHARATED IRON OXIDE] [Concomitant]
     Active Substance: IRON SUCROSE
     Dosage: 80 MILLIGRAM, QWK
     Route: 065
     Dates: start: 20200828, end: 20200925
  16. PRECIPITATED CALCIUM CARBONATE [Concomitant]
     Active Substance: CALCIUM CARBONATE
     Dosage: 1500 MG, EVERYDAY
     Route: 065
     Dates: end: 20190716
  17. PRECIPITATED CALCIUM CARBONATE [Concomitant]
     Active Substance: CALCIUM CARBONATE
     Dosage: 1000 MG, EVERYDAY
     Route: 065
     Dates: start: 20190717, end: 20190910
  18. PARSABIV [Suspect]
     Active Substance: ETELCALCETIDE HYDROCHLORIDE
     Indication: PRODUCT USED FOR UNKNOWN INDICATION
  19. MAXACALCITOL [Suspect]
     Active Substance: MAXACALCITOL
     Dosage: 2.5 UG, Q84H
     Route: 010
     Dates: start: 20190311, end: 20200626
  20. NESP [Concomitant]
     Active Substance: DARBEPOETIN ALFA
     Dosage: 10 UG, QW
     Route: 065
     Dates: end: 20190121
  21. NESP [Concomitant]
     Active Substance: DARBEPOETIN ALFA
     Dosage: 10 UG, QW
     Route: 065
     Dates: start: 20190624, end: 20200106
  22. NESP [Concomitant]
     Active Substance: DARBEPOETIN ALFA
     Dosage: 20 MICROGRAM, QWK
     Route: 042
     Dates: start: 20200113, end: 20200127
  23. NESP [Concomitant]
     Active Substance: DARBEPOETIN ALFA
     Dosage: 10 MICROGRAM, QWK
     Route: 042
     Dates: start: 20210308
  24. FESIN [SACCHARATED IRON OXIDE] [Concomitant]
     Active Substance: IRON SUCROSE
     Dosage: 80 MILLIGRAM, QWK
     Route: 065
     Dates: start: 20190628, end: 20190719
  25. FESIN [SACCHARATED IRON OXIDE] [Concomitant]
     Active Substance: IRON SUCROSE
     Dosage: 80 MILLIGRAM, QWK
     Route: 065
     Dates: start: 20210219, end: 20210329

REACTIONS (6)
  - Myocardial ischaemia [Recovered/Resolved]
  - Peripheral arterial occlusive disease [Not Recovered/Not Resolved]
  - Contusion [Recovered/Resolved]
  - Shunt stenosis [Recovered/Resolved]
  - Hypercalcaemia [Recovered/Resolved]
  - Fall [Unknown]

NARRATIVE: CASE EVENT DATE: 20190304
